FAERS Safety Report 8036517-0 (Version None)
Quarter: 2012Q1

REPORT INFORMATION
  Report Type: 
  Country: None (occurrence: None)
  Receive Date: 20120111
  Receipt Date: 20120104
  Transmission Date: 20120608
  Serious: Yes (Death, Other)
  Sender: FDA-Public Use
  Company Number: US-BAYER-201041797NA

PATIENT
  Age: 84 Year
  Sex: Female
  Weight: 67 kg

DRUGS (13)
  1. VANCOMYCIN [Concomitant]
     Dosage: 1 GRAM
     Route: 042
     Dates: start: 19951102
  2. LASIX [Concomitant]
     Route: 048
  3. NITROGLYCERIN [Concomitant]
     Dosage: UNK
     Route: 042
     Dates: start: 19951102
  4. LANOXIN [Concomitant]
     Route: 048
  5. TRASYLOL [Suspect]
     Indication: CORONARY ARTERY BYPASS
     Dosage: TEST DOSE: 1ML; 200ML PUMP PRIME
     Route: 042
     Dates: start: 19951102
  6. MANDOL [Concomitant]
     Dosage: 2 GMS
     Route: 042
     Dates: start: 19951102
  7. TRASYLOL [Suspect]
     Dosage: 200 ML THEN 50 CC PER HOUR
     Route: 042
     Dates: start: 19951102, end: 19951102
  8. VASOTEC [Concomitant]
     Route: 048
  9. ACETYLSALICYLIC ACID SRT [Concomitant]
     Dosage: 81 MG
     Route: 048
  10. RED BLOOD CELLS [Concomitant]
     Dosage: 2 U
     Route: 042
     Dates: start: 19951102
  11. PHENYLEPHRINE HCL [Concomitant]
     Dosage: UNK
     Route: 042
     Dates: start: 19951102
  12. POTASSIUM CHLORIDE [Concomitant]
     Dosage: 20 MILLIEQUIVALENT
     Route: 042
     Dates: start: 19951102
  13. HEPARIN [Concomitant]
     Dosage: 440 MG TOTAL
     Route: 042
     Dates: start: 19951102

REACTIONS (13)
  - INJURY [None]
  - RENAL FAILURE [None]
  - UNEVALUABLE EVENT [None]
  - DEATH [None]
  - STRESS [None]
  - ANXIETY [None]
  - FEAR [None]
  - EMOTIONAL DISTRESS [None]
  - BRADYARRHYTHMIA [None]
  - RENAL INJURY [None]
  - MULTI-ORGAN FAILURE [None]
  - PAIN [None]
  - RENAL IMPAIRMENT [None]
